FAERS Safety Report 6117501-0 (Version None)
Quarter: 2009Q1

REPORT INFORMATION
  Report Type: 
  Country: None (occurrence: None)
  Receive Date: 20090314
  Receipt Date: 20090116
  Transmission Date: 20090719
  Serious: No
  Sender: FDA-Public Use
  Company Number: US-ABBOTT-09P-163-0498664-00

PATIENT
  Age: 25 Year
  Sex: Male

DRUGS (3)
  1. HUMIRA [Suspect]
     Indication: ANKYLOSING SPONDYLITIS
     Route: 058
     Dates: start: 20080407
  2. SULFATHALAZINE [Concomitant]
     Indication: ANKYLOSING SPONDYLITIS
  3. MOBIC [Concomitant]
     Indication: ANKYLOSING SPONDYLITIS

REACTIONS (1)
  - INJECTION SITE REACTION [None]
